FAERS Safety Report 21377141 (Version 1)
Quarter: 2022Q3

REPORT INFORMATION
  Report Type: Spontaneous
  Country: US (occurrence: US)
  Receive Date: 20220926
  Receipt Date: 20220926
  Transmission Date: 20221027
  Serious: No
  Sender: FDA-Public Use
  Company Number: US-BIOGEN-2022BI01156812

PATIENT
  Sex: Female

DRUGS (1)
  1. TECFIDERA [Suspect]
     Active Substance: DIMETHYL FUMARATE
     Indication: Multiple sclerosis
     Route: 050

REACTIONS (7)
  - Fatigue [Unknown]
  - Paraesthesia [Unknown]
  - Insomnia [Unknown]
  - Drug intolerance [Unknown]
  - Toxicity to various agents [Unknown]
  - Hot flush [Unknown]
  - Feeling hot [Unknown]
